FAERS Safety Report 7647637-4 (Version None)
Quarter: 2011Q3

REPORT INFORMATION
  Report Type: 
  Country: None (occurrence: None)
  Receive Date: 20110801
  Receipt Date: 20110801
  Transmission Date: 20111222
  Serious: Yes (Other)
  Sender: FDA-Public Use
  Company Number: None

PATIENT
  Age: 55 Year
  Sex: Female
  Weight: 56.699 kg

DRUGS (1)
  1. ENJUVIA [Suspect]
     Indication: MENOPAUSAL SYMPTOMS
     Dosage: 1 TABLET
     Route: 048
     Dates: start: 20110623, end: 20110722

REACTIONS (4)
  - RASH [None]
  - URTICARIA [None]
  - PRURITUS [None]
  - PETECHIAE [None]
